FAERS Safety Report 15954218 (Version 2)
Quarter: 2019Q2

REPORT INFORMATION
  Report Type: Other
  Country: CZ (occurrence: CZ)
  Receive Date: 20190212
  Receipt Date: 20190402
  Transmission Date: 20190711
  Serious: Yes (Death, Hospitalization)
  Sender: FDA-Public Use
  Company Number: CZ-PROVELL PHARMACEUTICALS-2062553

PATIENT
  Age: 72 Year
  Sex: Female

DRUGS (10)
  1. VALPROATE SODIUM. [Suspect]
     Active Substance: VALPROATE SODIUM
     Route: 065
  2. PHENYTOIN. [Suspect]
     Active Substance: PHENYTOIN
     Route: 042
  3. EUTHYROX [Suspect]
     Active Substance: LEVOTHYROXINE SODIUM
  4. CARBAMAZEPINE. [Suspect]
     Active Substance: CARBAMAZEPINE
     Route: 048
  5. VALPROATE SODIUM. [Suspect]
     Active Substance: VALPROATE SODIUM
  6. PHENYTOIN. [Suspect]
     Active Substance: PHENYTOIN
     Route: 042
  7. PHENYTOIN. [Suspect]
     Active Substance: PHENYTOIN
     Route: 042
  8. PHENYTOIN. [Suspect]
     Active Substance: PHENYTOIN
     Route: 040
  9. EUTHYROX [Suspect]
     Active Substance: LEVOTHYROXINE SODIUM
     Indication: PRIMARY HYPOTHYROIDISM
     Route: 065
  10. CARBAMAZEPINE. [Suspect]
     Active Substance: CARBAMAZEPINE
     Route: 048

REACTIONS (11)
  - Hemiplegia [Unknown]
  - Drug interaction [Fatal]
  - Hypothyroidism [Unknown]
  - Lethargy [Unknown]
  - Sepsis [Fatal]
  - Facial paralysis [Unknown]
  - Constipation [Unknown]
  - Depressed level of consciousness [Unknown]
  - Urinary tract infection [Fatal]
  - Eyelid oedema [Unknown]
  - Cerebral ischaemia [Unknown]
